FAERS Safety Report 6494842-9 (Version None)
Quarter: 2009Q4

REPORT INFORMATION
  Report Type: 
  Country: None (occurrence: None)
  Receive Date: 20091214
  Receipt Date: 20091207
  Transmission Date: 20100525
  Serious: Yes (Hospitalization)
  Sender: FDA-Public Use
  Company Number: PHHY2009US53922

PATIENT
  Age: 55 Year
  Sex: Male

DRUGS (3)
  1. CYCLOSPORINE [Suspect]
     Indication: LIVER TRANSPLANT
  2. SIROLIMUS [Suspect]
     Indication: LIVER TRANSPLANT
  3. PREDNISONE [Concomitant]
     Indication: LIVER TRANSPLANT

REACTIONS (10)
  - BREATH SOUNDS ABNORMAL [None]
  - COUGH [None]
  - DYSPNOEA [None]
  - INTERSTITIAL LUNG DISEASE [None]
  - LUNG INFILTRATION [None]
  - LYMPHOCYTIC INFILTRATION [None]
  - PNEUMONIA ASPIRATION [None]
  - PULMONARY TOXICITY [None]
  - PYREXIA [None]
  - RALES [None]
